FAERS Safety Report 8936149 (Version 2)
Quarter: 2012Q4

REPORT INFORMATION
  Report Type: 
  Country: US (occurrence: US)
  Receive Date: 20121130
  Receipt Date: 20121217
  Transmission Date: 20130627
  Serious: Yes (Death)
  Sender: FDA-Public Use
  Company Number: US-BIOGENIDEC-2012BI054987

PATIENT
  Age: 36 Year
  Sex: Female

DRUGS (10)
  1. TYSABRI [Suspect]
     Indication: MULTIPLE SCLEROSIS
     Route: 042
     Dates: start: 20100610, end: 20121112
  2. AMANTADINE [Concomitant]
  3. CELEBREX [Concomitant]
  4. DILAUDID [Concomitant]
  5. TOPAMAX [Concomitant]
  6. VITAMIN D [Concomitant]
  7. MECLIZINE [Concomitant]
  8. IMITREX [Concomitant]
  9. VESICARE [Concomitant]
  10. VALIUM [Concomitant]

REACTIONS (1)
  - Overdose [Fatal]
